FAERS Safety Report 11467087 (Version 1)
Quarter: 2015Q3

REPORT INFORMATION
  Report Type: Report from Study
  Country: US (occurrence: US)
  Receive Date: 20150908
  Receipt Date: 20150908
  Transmission Date: 20151125
  Serious: Yes (Other)
  Sender: FDA-Public Use
  Company Number: US-AMGEN-USASL2015090947

PATIENT
  Age: 63 Year
  Sex: Male

DRUGS (1)
  1. ENBREL [Suspect]
     Active Substance: ETANERCEPT
     Indication: PSORIATIC ARTHROPATHY
     Dosage: 50 MG, QWK
     Route: 065

REACTIONS (11)
  - Tooth disorder [Unknown]
  - Diverticulitis [Unknown]
  - Oral surgery [Unknown]
  - Constipation [Unknown]
  - Anal fissure [Unknown]
  - Hypersensitivity [Unknown]
  - Haemorrhoids [Recovered/Resolved]
  - Decreased appetite [Unknown]
  - Artificial crown procedure [Unknown]
  - Drug dose omission [Unknown]
  - Procedural haemorrhage [Unknown]

NARRATIVE: CASE EVENT DATE: 201508
